FAERS Safety Report 12908390 (Version 1)
Quarter: 2016Q4

REPORT INFORMATION
  Report Type: Spontaneous
  Country: PL (occurrence: PL)
  Receive Date: 20161103
  Receipt Date: 20161103
  Transmission Date: 20170207
  Serious: Yes (Hospitalization)
  Sender: FDA-Public Use
  Company Number: PL-ABBVIE-16P-129-1771295-00

PATIENT
  Age: 32 Year
  Sex: Female

DRUGS (11)
  1. THIOPENTAL SODIUM. [Suspect]
     Active Substance: THIOPENTAL SODIUM
     Indication: STATUS EPILEPTICUS
     Route: 065
  2. MEROPENEM. [Interacting]
     Active Substance: MEROPENEM
     Indication: ACINETOBACTER INFECTION
  3. LEVETIRACETAM. [Suspect]
     Active Substance: LEVETIRACETAM
     Indication: STATUS EPILEPTICUS
     Route: 065
  4. THIOPENTAL SODIUM. [Suspect]
     Active Substance: THIOPENTAL SODIUM
     Route: 065
  5. PHENYTOIN. [Suspect]
     Active Substance: PHENYTOIN
     Route: 065
  6. METRONIDAZOLE. [Suspect]
     Active Substance: METRONIDAZOLE
     Indication: ANTIBIOTIC THERAPY
     Route: 065
  7. CLONAZEPAM. [Concomitant]
     Active Substance: CLONAZEPAM
     Indication: PRODUCT USED FOR UNKNOWN INDICATION
  8. MEROPENEM. [Interacting]
     Active Substance: MEROPENEM
     Indication: ENTEROBACTER INFECTION
     Route: 065
  9. VALPROIC ACID. [Suspect]
     Active Substance: VALPROIC ACID
     Indication: STATUS EPILEPTICUS
     Route: 065
  10. PHENYTOIN. [Suspect]
     Active Substance: PHENYTOIN
     Indication: STATUS EPILEPTICUS
     Route: 065
  11. CEFTRIAXONE SODIUM. [Suspect]
     Active Substance: CEFTRIAXONE SODIUM
     Indication: ANTIBIOTIC THERAPY
     Route: 065

REACTIONS (15)
  - Blood lactic acid increased [Unknown]
  - Platelet count decreased [Unknown]
  - Seizure [Unknown]
  - Enterobacter infection [Unknown]
  - C-reactive protein increased [Unknown]
  - Septic shock [Unknown]
  - Body temperature increased [Unknown]
  - Multiple organ dysfunction syndrome [Unknown]
  - Drug ineffective [Unknown]
  - Inflammation [Unknown]
  - Drug interaction [Unknown]
  - Exposure during pregnancy [Unknown]
  - Procalcitonin increased [Unknown]
  - Acinetobacter infection [Unknown]
  - Uterine enlargement [Unknown]
